FAERS Safety Report 12590192 (Version 2)
Quarter: 2016Q4

REPORT INFORMATION
  Report Type: Spontaneous
  Country: US (occurrence: US)
  Receive Date: 20160725
  Receipt Date: 20161013
  Transmission Date: 20170207
  Serious: No
  Sender: FDA-Public Use
  Company Number: US-TAKEDA-2016TUS012447

PATIENT
  Age: 65 Year
  Sex: Male
  Weight: 83.9 kg

DRUGS (5)
  1. ULORIC [Suspect]
     Active Substance: FEBUXOSTAT
     Indication: GOUT
     Dosage: 40 MG, QD
     Route: 048
     Dates: start: 20160928
  2. ULORIC [Suspect]
     Active Substance: FEBUXOSTAT
     Indication: JOINT SWELLING
  3. KW-0761 MOGAMULIZUMAB (FROM JAPAN) ANIT CC4 ANTIBODY [Concomitant]
     Indication: T-CELL LYMPHOMA
     Dosage: UNK
  4. ULORIC [Suspect]
     Active Substance: FEBUXOSTAT
     Indication: BLOOD URIC ACID INCREASED
     Dosage: 40 MG, QD
     Route: 048
     Dates: start: 20150714, end: 20160915
  5. GABAPENTIN. [Concomitant]
     Active Substance: GABAPENTIN
     Indication: PRURITUS
     Dosage: 90 MG, QD
     Route: 048

REACTIONS (6)
  - Fungal infection [Recovered/Resolved]
  - Skin disorder [Recovering/Resolving]
  - Peripheral swelling [Unknown]
  - Gout [Recovered/Resolved]
  - Skin infection [Recovering/Resolving]
  - Furuncle [Recovering/Resolving]

NARRATIVE: CASE EVENT DATE: 201601
